FAERS Safety Report 5812322-8 (Version None)
Quarter: 2008Q3

REPORT INFORMATION
  Report Type: 
  Country: None (occurrence: None)
  Receive Date: 20080714
  Receipt Date: 20080703
  Transmission Date: 20090109
  Serious: Yes (Death)
  Sender: FDA-Public Use
  Company Number: 2008US001728

PATIENT
  Age: 55 Year
  Sex: Male

DRUGS (1)
  1. MYCAMINE [Suspect]
     Indication: CANDIDIASIS

REACTIONS (1)
  - DEATH [None]
